FAERS Safety Report 5925364-9 (Version None)
Quarter: 2008Q4

REPORT INFORMATION
  Report Type: 
  Country: None (occurrence: None)
  Receive Date: 20081020
  Receipt Date: 20081020
  Transmission Date: 20090506
  Serious: Yes (Other)
  Sender: FDA-Public Use
  Company Number: None

PATIENT
  Age: 88 Year
  Sex: Male
  Weight: 51 kg

DRUGS (2)
  1. METOCLOPROPAMIDE 10 MG SICOR [Suspect]
     Indication: GASTROOESOPHAGEAL REFLUX PROPHYLAXIS
     Dosage: 10 MG X1 IV BOLUS
     Route: 040
     Dates: start: 20081017, end: 20081017
  2. METOCLOPROPAMIDE 10 MG SICOR [Suspect]
     Indication: SURGERY
     Dosage: 10 MG X1 IV BOLUS
     Route: 040
     Dates: start: 20081017, end: 20081017

REACTIONS (5)
  - CRYING [None]
  - DRUG INTERACTION [None]
  - MOVEMENT DISORDER [None]
  - MUSCLE TWITCHING [None]
  - PAIN [None]
